FAERS Safety Report 11194912 (Version 2)
Quarter: 2015Q2

REPORT INFORMATION
  Report Type: Spontaneous
  Country: DE (occurrence: DE)
  Receive Date: 20150617
  Receipt Date: 20150629
  Transmission Date: 20150821
  Serious: Yes (Other)
  Sender: FDA-Public Use
  Company Number: DE-DRREDDYS-USA/GER/15/0048723

PATIENT
  Age: 82 Year
  Sex: Female

DRUGS (20)
  1. DESLORATADINE. [Suspect]
     Active Substance: DESLORATADINE
     Indication: SCHNITZLER^S SYNDROME
  2. CICLOSPORIN A [Suspect]
     Active Substance: CYCLOSPORINE
     Indication: PYREXIA
  3. RANITIDINE [Suspect]
     Active Substance: RANITIDINE\RANITIDINE HYDROCHLORIDE
     Indication: PYREXIA
  4. DESLORATADINE. [Suspect]
     Active Substance: DESLORATADINE
     Indication: BONE PAIN
  5. PREDNISOLONE. [Suspect]
     Active Substance: PREDNISOLONE
     Indication: PYREXIA
  6. RANITIDINE [Suspect]
     Active Substance: RANITIDINE\RANITIDINE HYDROCHLORIDE
     Indication: ARTHRALGIA
  7. DESLORATADINE. [Suspect]
     Active Substance: DESLORATADINE
     Indication: PYREXIA
  8. DESLORATADINE. [Suspect]
     Active Substance: DESLORATADINE
     Indication: ARTHRALGIA
  9. PREDNISOLONE. [Suspect]
     Active Substance: PREDNISOLONE
     Indication: SCHNITZLER^S SYNDROME
  10. CICLOSPORIN A [Suspect]
     Active Substance: CYCLOSPORINE
     Indication: BONE PAIN
  11. RANITIDINE [Suspect]
     Active Substance: RANITIDINE\RANITIDINE HYDROCHLORIDE
     Indication: SCHNITZLER^S SYNDROME
     Route: 065
  12. DESLORATADINE. [Suspect]
     Active Substance: DESLORATADINE
     Indication: BURNING SENSATION
  13. PREDNISOLONE. [Suspect]
     Active Substance: PREDNISOLONE
     Indication: ARTHRALGIA
  14. PREDNISOLONE. [Suspect]
     Active Substance: PREDNISOLONE
     Indication: BURNING SENSATION
  15. CICLOSPORIN A [Suspect]
     Active Substance: CYCLOSPORINE
     Indication: BURNING SENSATION
  16. RANITIDINE [Suspect]
     Active Substance: RANITIDINE\RANITIDINE HYDROCHLORIDE
     Indication: BONE PAIN
  17. RANITIDINE [Suspect]
     Active Substance: RANITIDINE\RANITIDINE HYDROCHLORIDE
     Indication: BURNING SENSATION
  18. CICLOSPORIN A [Suspect]
     Active Substance: CYCLOSPORINE
     Indication: ARTHRALGIA
  19. PREDNISOLONE. [Suspect]
     Active Substance: PREDNISOLONE
     Indication: BONE PAIN
  20. CICLOSPORIN A [Suspect]
     Active Substance: CYCLOSPORINE
     Indication: SCHNITZLER^S SYNDROME
     Route: 065

REACTIONS (2)
  - Glaucoma [Recovered/Resolved]
  - Hypertension [Recovered/Resolved]
